FAERS Safety Report 7434631-1 (Version None)
Quarter: 2011Q2

REPORT INFORMATION
  Report Type: 
  Country: None (occurrence: None)
  Receive Date: 20110421
  Receipt Date: 20110421
  Transmission Date: 20111010
  Serious: Yes (Hospitalization)
  Sender: FDA-Public Use
  Company Number: None

PATIENT
  Age: 46 Year
  Sex: Male
  Weight: 68.0396 kg

DRUGS (1)
  1. AMOXICILLIN AND CLAVULANATE POTASSIUM [Suspect]
     Indication: SINUSITIS
     Dates: start: 20100321, end: 20100331

REACTIONS (5)
  - PRURITUS [None]
  - DYSPNOEA [None]
  - TACHYCARDIA [None]
  - TACHYPNOEA [None]
  - URTICARIA [None]
